FAERS Safety Report 18927356 (Version 1)
Quarter: 2021Q1

REPORT INFORMATION
  Report Type: Spontaneous
  Country: US (occurrence: US)
  Receive Date: 20210222
  Receipt Date: 20210222
  Transmission Date: 20210420
  Serious: No
  Sender: FDA-Public Use
  Company Number: None

PATIENT
  Age: 49 Year
  Sex: Female
  Weight: 40.5 kg

DRUGS (5)
  1. VITAMIN D [Concomitant]
     Active Substance: VITAMIN D NOS
  2. DAILY GREEN BOOST [Concomitant]
  3. LORAZEPAM 2MG TABLET [Suspect]
     Active Substance: LORAZEPAM
     Indication: DENTAL DISORDER PROPHYLAXIS
     Dosage: ?          QUANTITY:1 TABLET(S);?
     Dates: start: 20210222, end: 20210222
  4. BUTYRIC0CAL?MAG [Concomitant]
  5. SUPER EFA [Concomitant]

REACTIONS (1)
  - Urinary incontinence [None]

NARRATIVE: CASE EVENT DATE: 20210222
